FAERS Safety Report 5287599-0 (Version None)
Quarter: 2007Q1

REPORT INFORMATION
  Report Type: 
  Country: None (occurrence: None)
  Receive Date: 20070124
  Receipt Date: 20061016
  Transmission Date: 20070707
  Serious: Yes (Disabling)
  Sender: FDA-Public Use
  Company Number: WAES 0610USA10661

PATIENT
  Age: 75 Year
  Sex: Female

DRUGS (7)
  1. INVANZ [Suspect]
     Indication: INFECTION
     Dates: start: 20060907
  2. BENICAR [Concomitant]
  3. COUMADIN [Concomitant]
  4. LIPITOR [Concomitant]
  5. ZYVOX [Concomitant]
  6. GASTROINTESTINAL PREPARATIONS [Concomitant]
  7. HEPARIN [Concomitant]

REACTIONS (2)
  - ANOREXIA [None]
  - DYSGEUSIA [None]
